FAERS Safety Report 21065095 (Version 1)
Quarter: 2022Q3

REPORT INFORMATION
  Report Type: Spontaneous
  Country: US (occurrence: US)
  Receive Date: 20220711
  Receipt Date: 20220711
  Transmission Date: 20221027
  Serious: No
  Sender: FDA-Public Use
  Company Number: US-KYOWAKIRIN-2022BKK010541

PATIENT

DRUGS (1)
  1. CRYSVITA [Suspect]
     Active Substance: BUROSUMAB-TWZA
     Indication: Hereditary hypophosphataemic rickets
     Dosage: 40 MG, 1X/4 WEEKS (UNDER THE SKIN)
     Route: 058
     Dates: start: 202203

REACTIONS (7)
  - Hypersensitivity [Recovered/Resolved]
  - Heart rate increased [Recovered/Resolved]
  - Facial discomfort [Recovered/Resolved]
  - Heart rate increased [Recovered/Resolved]
  - Abdominal pain [Recovered/Resolved]
  - Pelvic pain [Recovered/Resolved]
  - Dizziness [Recovered/Resolved]
